FAERS Safety Report 10019138 (Version 1)
Quarter: 2014Q1

REPORT INFORMATION
  Report Type: Spontaneous
  Country: US (occurrence: None)
  Receive Date: 20140314
  Receipt Date: 20140314
  Transmission Date: 20141002
  Serious: Yes (Hospitalization)
  Sender: FDA-Public Use
  Company Number: None

PATIENT
  Age: 30 Year
  Sex: Female
  Weight: 84.82 kg

DRUGS (3)
  1. NUVARING [Suspect]
     Indication: CONTRACEPTION
     Dosage: 1 RING EVERY 3 WEEKS VAGINAL
     Route: 067
     Dates: start: 20110907, end: 20140228
  2. OMEPRAZOLE [Concomitant]
  3. VITAMIN B-12 COMPLEX [Concomitant]

REACTIONS (2)
  - Pain in extremity [None]
  - Pain in extremity [None]
